FAERS Safety Report 6807193-7 (Version None)
Quarter: 2010Q2

REPORT INFORMATION
  Report Type: 
  Country: None (occurrence: None)
  Receive Date: 20100629
  Receipt Date: 20080818
  Transmission Date: 20101027
  Serious: No
  Sender: FDA-Public Use
  Company Number: US-PFIZER INC-2008069018

PATIENT
  Sex: Male
  Weight: 100 kg

DRUGS (4)
  1. XANAX [Suspect]
     Indication: ANXIETY
     Dates: start: 20080701
  2. LEXAPRO [Concomitant]
  3. PROVIGIL [Concomitant]
  4. FINASTERIDE [Concomitant]

REACTIONS (1)
  - DRUG SCREEN FALSE POSITIVE [None]
